FAERS Safety Report 20469780 (Version 6)
Quarter: 2023Q2

REPORT INFORMATION
  Report Type: Spontaneous
  Country: US (occurrence: US)
  Receive Date: 20220214
  Receipt Date: 20230630
  Transmission Date: 20230721
  Serious: Yes (Death, Other)
  Sender: FDA-Public Use
  Company Number: US-GW PHARMA-202202USGW00602

PATIENT
  Age: 27 Year
  Sex: Female
  Weight: 90.703 kg

DRUGS (5)
  1. EPIDIOLEX [Suspect]
     Active Substance: CANNABIDIOL
     Indication: Petit mal epilepsy
     Dosage: 250 MILLIGRAM, DOSE CHANGED TO 250 MG IN MORNING AND 300 MG AT NIGHT, BUT HAS NOT SHIPPED YET
     Route: 048
     Dates: start: 20211222
  2. EPIDIOLEX [Suspect]
     Active Substance: CANNABIDIOL
     Indication: Idiopathic generalised epilepsy
     Dosage: 9.92 MG/KG/DAY, 450 MILLIGRAM, BID
     Route: 048
     Dates: start: 2021, end: 2021
  3. EPIDIOLEX [Suspect]
     Active Substance: CANNABIDIOL
     Indication: Epilepsy
     Dosage: 4.85 MG/KG/DAY, 220 MILLIGRAM, BID
     Route: 048
     Dates: start: 202110, end: 2021
  4. EPIDIOLEX [Suspect]
     Active Substance: CANNABIDIOL
     Dosage: 7.50 MG/KG/DAY, 340 MILLIGRAM, BID
     Route: 048
     Dates: start: 2021, end: 2021
  5. EPIDIOLEX [Suspect]
     Active Substance: CANNABIDIOL
     Dosage: 5.5 MILLILITER
     Route: 048
     Dates: start: 20220322

REACTIONS (8)
  - Death [Fatal]
  - Seizure [Unknown]
  - COVID-19 [Unknown]
  - Head injury [Unknown]
  - Urticaria [Unknown]
  - Blood creatinine increased [Unknown]
  - Cough [Not Recovered/Not Resolved]
  - Product use in unapproved indication [Unknown]

NARRATIVE: CASE EVENT DATE: 20220214
